FAERS Safety Report 9726407 (Version 2)
Quarter: 2014Q1

REPORT INFORMATION
  Report Type: Spontaneous
  Country: IT (occurrence: None)
  Receive Date: 20131129
  Receipt Date: 20140127
  Transmission Date: 20141002
  Serious: Yes (Hospitalization)
  Sender: FDA-Public Use
  Company Number: AUR-APL-2013-09787

PATIENT
  Age: 66 Year
  Sex: Female

DRUGS (1)
  1. AMOXICILLIN [Suspect]
     Indication: INFECTION
     Dosage: 1 DOSAGE FORMS, TOTAL, ORAL
     Route: 048
     Dates: start: 20131023, end: 20131023

REACTIONS (1)
  - Erythema [None]
